FAERS Safety Report 21253801 (Version 1)
Quarter: 2022Q3

REPORT INFORMATION
  Report Type: Spontaneous
  Country: US (occurrence: None)
  Receive Date: 20220824
  Receipt Date: 20220824
  Transmission Date: 20221027
  Serious: No
  Sender: FDA-Public Use
  Company Number: None

PATIENT
  Sex: Male

DRUGS (1)
  1. CAPECITABINE [Suspect]
     Active Substance: CAPECITABINE
     Dosage: FREQUENCY : TWICE A DAY;?
     Route: 048

REACTIONS (6)
  - Spinal epidural haematoma [None]
  - Paralysis [None]
  - Hypoaesthesia [None]
  - Dry skin [None]
  - Toothache [None]
  - Lymphadenopathy [None]
